FAERS Safety Report 9716936 (Version 2)
Quarter: 2015Q3

REPORT INFORMATION
  Report Type: Spontaneous
  Country: US (occurrence: US)
  Receive Date: 20131127
  Receipt Date: 20150803
  Transmission Date: 20151125
  Serious: No
  Sender: FDA-Public Use
  Company Number: US-GILEAD-2009-0019972

PATIENT
  Age: 53 Year
  Sex: Female
  Weight: 72.57 kg

DRUGS (11)
  1. PROTONIX [Concomitant]
     Active Substance: PANTOPRAZOLE SODIUM
  2. TRICOR [Concomitant]
     Active Substance: FENOFIBRATE
  3. REVATIO [Concomitant]
     Active Substance: SILDENAFIL CITRATE
  4. SPIRIVA [Concomitant]
     Active Substance: TIOTROPIUM BROMIDE MONOHYDRATE
  5. LASIX [Concomitant]
     Active Substance: FUROSEMIDE
  6. CALCIUM [Concomitant]
     Active Substance: CALCIUM
  7. PLAVIX [Concomitant]
     Active Substance: CLOPIDOGREL BISULFATE
  8. CARVEDILOL. [Concomitant]
     Active Substance: CARVEDILOL
  9. LETAIRIS [Suspect]
     Active Substance: AMBRISENTAN
     Indication: PULMONARY ARTERIAL HYPERTENSION
     Route: 048
     Dates: start: 20080315
  10. NOVOLOG [Concomitant]
     Active Substance: INSULIN ASPART
  11. LANTUS [Concomitant]
     Active Substance: INSULIN GLARGINE

REACTIONS (1)
  - Nasal congestion [Unknown]
